FAERS Safety Report 9513817 (Version 5)
Quarter: 2014Q1

REPORT INFORMATION
  Report Type: Spontaneous
  Country: US (occurrence: US)
  Receive Date: 20130910
  Receipt Date: 20140321
  Transmission Date: 20141002
  Serious: Yes (Death, Hospitalization, Other)
  Sender: FDA-Public Use
  Company Number: US-PFIZER INC-2013129802

PATIENT
  Age: 75 Year
  Sex: Male

DRUGS (2)
  1. DILANTIN [Suspect]
     Indication: PROPHYLAXIS
     Dosage: 300 MG, 3X/DAY (THREE 100 MG CAPSULES EVERY TWO HOURS FOR THREE DOSES)
     Route: 048
     Dates: start: 20000719
  2. DILANTIN [Suspect]
     Dosage: 200 MG, 2X/DAY
     Route: 048
     Dates: start: 20000720, end: 20000811

REACTIONS (2)
  - Stevens-Johnson syndrome [Fatal]
  - Toxic epidermal necrolysis [Fatal]
